FAERS Safety Report 4270440-2 (Version None)
Quarter: 2004Q1

REPORT INFORMATION
  Report Type: 
  Country: None (occurrence: None)
  Receive Date: 20040114
  Receipt Date: 20031021
  Transmission Date: 20041129
  Serious: Yes (Life-Threatening, Other)
  Sender: FDA-Public Use
  Company Number: US-GLAXOSMITHKLINE-A0431113A

PATIENT
  Age: 73 Year
  Sex: Female

DRUGS (9)
  1. SEREVENT [Suspect]
     Indication: CHRONIC OBSTRUCTIVE AIRWAYS DISEASE
     Dosage: 1PUFF TWICE PER DAY
     Route: 055
     Dates: start: 20031021, end: 20031022
  2. ATROVENT [Concomitant]
     Indication: ILL-DEFINED DISORDER
  3. FLOVENT [Concomitant]
     Indication: ILL-DEFINED DISORDER
  4. LIBRIUM [Concomitant]
     Indication: ILL-DEFINED DISORDER
  5. LEVOXYL [Concomitant]
     Indication: ILL-DEFINED DISORDER
  6. VASOTEC [Concomitant]
     Indication: ILL-DEFINED DISORDER
  7. SINEQUAN [Concomitant]
     Indication: ILL-DEFINED DISORDER
  8. PREVACID [Concomitant]
     Indication: ILL-DEFINED DISORDER
  9. ALBUTEROL [Concomitant]
     Indication: ILL-DEFINED DISORDER

REACTIONS (3)
  - BRONCHOSPASM [None]
  - DRUG INEFFECTIVE [None]
  - WHEEZING [None]
